FAERS Safety Report 16360049 (Version 1)
Quarter: 2019Q2

REPORT INFORMATION
  Report Type: Report from Study
  Country: ES (occurrence: ES)
  Receive Date: 20190528
  Receipt Date: 20190528
  Transmission Date: 20190711
  Serious: Yes (Other)
  Sender: FDA-Public Use
  Company Number: ES-ROCHE-2265747

PATIENT
  Age: 57 Year
  Sex: Male
  Weight: 84 kg

DRUGS (6)
  1. COBIMETINIB. [Suspect]
     Active Substance: COBIMETINIB
     Indication: METASTATIC MALIGNANT MELANOMA
     Dosage: LAST DOSE PRIOR TO ADVERSE EVENT OF SPECIAL INTEREST: 12/FEB/2019
     Route: 048
     Dates: start: 20170919
  2. COBIMETINIB. [Suspect]
     Active Substance: COBIMETINIB
     Dosage: LAST DOSE PRIOR TO ADVERSE EVENT OF SPECIAL INTEREST: 30/JAN/2019
     Route: 048
     Dates: start: 20170920, end: 20190129
  3. CHLORTALIDONE [Concomitant]
     Active Substance: CHLORTHALIDONE
     Route: 065
     Dates: start: 20171002
  4. METFORMIN [Concomitant]
     Active Substance: METFORMIN HYDROCHLORIDE
     Route: 065
     Dates: start: 20180122
  5. LOSARTAN. [Concomitant]
     Active Substance: LOSARTAN
     Route: 065
     Dates: start: 20171002
  6. VEMURAFENIB. [Suspect]
     Active Substance: VEMURAFENIB
     Indication: METASTATIC MALIGNANT MELANOMA
     Dosage: LAST DOSE PRIOR TO ADVERSE EVENT OF SPECIAL INTEREST: 30/JAN/2019 (40 MG)
     Route: 048
     Dates: start: 20170919

REACTIONS (2)
  - Keratoacanthoma [Recovered/Resolved]
  - Retinopathy [Recovered/Resolved]

NARRATIVE: CASE EVENT DATE: 20190131
